FAERS Safety Report 4777261-2 (Version None)
Quarter: 2005Q3

REPORT INFORMATION
  Report Type: 
  Country: None (occurrence: None)
  Receive Date: 20050923
  Receipt Date: 20050609
  Transmission Date: 20060218
  Serious: Yes (Hospitalization, Other)
  Sender: FDA-Public Use
  Company Number: US-MERCK-0506USA01839

PATIENT
  Age: 67 Year
  Sex: Male
  Weight: 127 kg

DRUGS (15)
  1. VIOXX [Suspect]
     Indication: ARTHRITIS
     Route: 048
     Dates: start: 20030201, end: 20040201
  2. VIOXX [Suspect]
     Route: 048
     Dates: start: 20030201, end: 20040201
  3. VIOXX [Suspect]
     Route: 065
     Dates: start: 20010726, end: 20010801
  4. COLCHICINE [Concomitant]
     Route: 065
  5. FUROSEMIDE [Concomitant]
     Route: 065
  6. LISINOPRIL [Concomitant]
     Route: 065
  7. ALLOPURINOL [Concomitant]
     Route: 065
  8. SINGULAIR [Concomitant]
     Route: 065
  9. METOPROLOL [Concomitant]
     Route: 065
  10. SIMVASTATIN [Concomitant]
     Route: 065
  11. TRAZODONE HYDROCHLORIDE [Concomitant]
     Route: 065
  12. ASPIRIN [Concomitant]
     Route: 065
  13. ALBUTEROL [Concomitant]
     Route: 065
  14. SEREVENT [Concomitant]
     Route: 065
  15. VICODIN [Concomitant]
     Route: 065

REACTIONS (26)
  - ANGINA UNSTABLE [None]
  - ANXIETY [None]
  - ARTHRALGIA [None]
  - AZOTAEMIA [None]
  - BACTERAEMIA [None]
  - CARDIAC FAILURE CONGESTIVE [None]
  - CEREBROVASCULAR ACCIDENT [None]
  - CHEST PAIN [None]
  - CHEST WALL PAIN [None]
  - CHRONIC OBSTRUCTIVE PULMONARY DISEASE [None]
  - CORONARY ARTERY DISEASE [None]
  - COUGH [None]
  - DEPRESSION [None]
  - DYSPNOEA [None]
  - GANGLION [None]
  - HYPERTENSIVE HEART DISEASE [None]
  - MYOCARDIAL INFARCTION [None]
  - PNEUMONIA [None]
  - PRESCRIBED OVERDOSE [None]
  - RENAL ARTERY STENOSIS [None]
  - RENAL FAILURE [None]
  - RESPIRATORY TRACT INFECTION [None]
  - SELF INJURIOUS BEHAVIOUR [None]
  - SHOULDER PAIN [None]
  - TRANSIENT ISCHAEMIC ATTACK [None]
  - UPPER RESPIRATORY TRACT CONGESTION [None]
